FAERS Safety Report 5495231-6 (Version None)
Quarter: 2007Q4

REPORT INFORMATION
  Report Type: 
  Country: None (occurrence: None)
  Receive Date: 20071024
  Receipt Date: 20071015
  Transmission Date: 20080405
  Serious: Yes (Hospitalization)
  Sender: FDA-Public Use
  Company Number: FR-ABBOTT-07P-056-0421027-00

PATIENT
  Sex: Male
  Weight: 53 kg

DRUGS (10)
  1. KALETRA [Suspect]
     Indication: HIV INFECTION
     Route: 048
     Dates: start: 20020301
  2. TENOFOVIR DISOPROXIL [Suspect]
     Indication: HIV INFECTION
     Route: 048
     Dates: start: 20020301
  3. EFAVIRENZ [Suspect]
     Indication: HIV INFECTION
     Route: 048
     Dates: start: 20020301
  4. HYDROXYCHLOROQUINE SULFATE [Suspect]
     Indication: HIV INFECTION
     Route: 048
  5. RITONAVIR [Concomitant]
     Indication: HIV INFECTION
     Route: 048
     Dates: start: 19980101
  6. CETIRIZINE HCL [Concomitant]
     Indication: DRUG USE FOR UNKNOWN INDICATION
  7. ATENOLOL [Concomitant]
     Indication: DRUG USE FOR UNKNOWN INDICATION
  8. MOLSIDOMINE [Concomitant]
     Indication: DRUG USE FOR UNKNOWN INDICATION
  9. DL-LYSINE ACETYLSALICYLATE [Concomitant]
     Indication: DRUG USE FOR UNKNOWN INDICATION
  10. OMEPRAZOLE [Concomitant]
     Indication: DRUG USE FOR UNKNOWN INDICATION

REACTIONS (4)
  - BLOOD PARATHYROID HORMONE INCREASED [None]
  - BONE PAIN [None]
  - HYPOPHOSPHATAEMIA [None]
  - VITAMIN D DEFICIENCY [None]
